FAERS Safety Report 7815185-4 (Version None)
Quarter: 2011Q4

REPORT INFORMATION
  Report Type: 
  Country: None (occurrence: None)
  Receive Date: 20111014
  Receipt Date: 20111011
  Transmission Date: 20120403
  Serious: Yes (Hospitalization)
  Sender: FDA-Public Use
  Company Number: AU-BRACCO-000141

PATIENT
  Sex: Female
  Weight: 75 kg

DRUGS (3)
  1. ISOVUE-370 [Suspect]
     Indication: COMPUTERISED TOMOGRAM
     Route: 042
     Dates: start: 20110714, end: 20110714
  2. ISOVUE-370 [Suspect]
     Indication: ABDOMINAL TENDERNESS
     Route: 042
     Dates: start: 20110714, end: 20110714
  3. ISOVUE-370 [Suspect]
     Indication: ABDOMINAL PAIN UPPER
     Route: 042
     Dates: start: 20110714, end: 20110714

REACTIONS (2)
  - CONTRAST MEDIA REACTION [None]
  - ATRIAL FIBRILLATION [None]
